FAERS Safety Report 8053701-0 (Version None)
Quarter: 2011Q4

REPORT INFORMATION
  Report Type: 
  Country: None (occurrence: None)
  Receive Date: 20111213
  Receipt Date: 20110930
  Transmission Date: 20120403
  Serious: No
  Sender: FDA-Public Use
  Company Number: 2011SP046422

PATIENT
  Age: 61 Year
  Sex: Male

DRUGS (4)
  1. CELEXA [Concomitant]
  2. PRINIVIL [Concomitant]
  3. SAPHRIS [Suspect]
     Indication: BIPOLAR I DISORDER
     Dosage: 10 MG; ONCE; SL
     Route: 060
     Dates: start: 20110930
  4. METFORMIN HCL [Concomitant]

REACTIONS (1)
  - SOMNOLENCE [None]
